FAERS Safety Report 20453552 (Version 1)
Quarter: 2022Q1

REPORT INFORMATION
  Report Type: Spontaneous
  Country: JP (occurrence: JP)
  Receive Date: 20220210
  Receipt Date: 20220210
  Transmission Date: 20220424
  Serious: Yes (Hospitalization, Other)
  Sender: FDA-Public Use
  Company Number: None

PATIENT
  Age: 70 Year
  Sex: Female

DRUGS (8)
  1. LINEZOLID [Suspect]
     Active Substance: LINEZOLID
     Indication: Staphylococcal infection
     Dosage: 1200 MILLIGRAM, QD
     Route: 041
  2. LINEZOLID [Suspect]
     Active Substance: LINEZOLID
     Indication: Arthritis infective
  3. RIFAMPIN [Concomitant]
     Active Substance: RIFAMPIN
     Indication: Staphylococcal infection
     Dosage: 450 MILLIGRAM, QD
     Route: 048
  4. RIFAMPIN [Concomitant]
     Active Substance: RIFAMPIN
     Indication: Arthritis infective
  5. CLINDAMYCIN [Concomitant]
     Active Substance: CLINDAMYCIN
     Indication: Staphylococcal infection
     Dosage: 450 MILLIGRAM, QD
     Route: 048
  6. CLINDAMYCIN [Concomitant]
     Active Substance: CLINDAMYCIN
     Indication: Arthritis infective
     Dosage: 900 MILLIGRAM, QD
     Route: 048
  7. MINOCYCLINE [Concomitant]
     Active Substance: MINOCYCLINE HYDROCHLORIDE
     Indication: Arthritis infective
     Dosage: 200 MILLIGRAM, QD
     Route: 048
  8. MINOCYCLINE [Concomitant]
     Active Substance: MINOCYCLINE HYDROCHLORIDE
     Indication: Staphylococcal infection

REACTIONS (1)
  - Neutropenia [Recovered/Resolved]
